FAERS Safety Report 8965609 (Version 1)
Quarter: 2012Q4

REPORT INFORMATION
  Report Type: Spontaneous
  Country: US (occurrence: None)
  Receive Date: 20121212
  Receipt Date: 20121212
  Transmission Date: 20130627
  Serious: Yes (Disabling, Other)
  Sender: FDA-Public Use
  Company Number: None

PATIENT
  Age: 42 Year
  Sex: Female
  Weight: 61.24 kg

DRUGS (2)
  1. ESCITALOPRAM [Suspect]
     Indication: ANXIETY
     Route: 048
  2. ESCITALOPRAM [Suspect]
     Indication: DEPRESSION
     Route: 048

REACTIONS (6)
  - Headache [None]
  - Dizziness [None]
  - Irritability [None]
  - Palpitations [None]
  - Affective disorder [None]
  - Product substitution issue [None]
